FAERS Safety Report 10038694 (Version 1)
Quarter: 2014Q1

REPORT INFORMATION
  Report Type: Spontaneous
  Country: US (occurrence: None)
  Receive Date: 20140306
  Receipt Date: 20140306
  Transmission Date: 20141002
  Serious: Yes (Other)
  Sender: FDA-Public Use
  Company Number: 163-21880-13072829

PATIENT
  Age: 40 Year
  Sex: Male

DRUGS (4)
  1. REVLIMID (LENALIDOMIDE) (25 MILLIGRAM, CAPSULES) [Suspect]
     Indication: HODGKIN^S DISEASE NODULAR SCLEROSIS
     Dosage: 18.75 MG, 21 IN 28 D, PO
     Route: 048
     Dates: start: 20130321
  2. REVLIMID (LENALIDOMIDE) (25 MILLIGRAM, CAPSULES) [Suspect]
     Indication: HODGKIN^S DISEASE
     Dosage: 18.75 MG, 21 IN 28 D, PO
     Route: 048
     Dates: start: 20130321
  3. PANOBINOSTAT (PANOBINOSTAT) (UNKNOWN) [Concomitant]
  4. ASPIRIN (ACETYLSALICYLIC ACID) (UNKNOWN) [Concomitant]

REACTIONS (1)
  - Neutrophil count decreased [None]
